FAERS Safety Report 7027476-8 (Version None)
Quarter: 2010Q4

REPORT INFORMATION
  Report Type: 
  Country: None (occurrence: None)
  Receive Date: 20101004
  Receipt Date: 20100923
  Transmission Date: 20110411
  Serious: Yes (Other)
  Sender: FDA-Public Use
  Company Number: US-ASTRAZENECA-2010SE41593

PATIENT
  Age: 24408 Day
  Sex: Male
  Weight: 111.1 kg

DRUGS (11)
  1. NEXIUM [Suspect]
     Indication: PROPHYLAXIS AGAINST GASTROINTESTINAL ULCER
     Route: 048
     Dates: start: 20091211
  2. CELECOXIB [Suspect]
     Indication: OSTEOARTHRITIS
     Dosage: THREE TIMES A DAY
     Route: 048
     Dates: start: 20091211
  3. IBUPROFEN [Suspect]
     Indication: RHEUMATOID ARTHRITIS
     Dosage: THREE TIMES A DAY
     Route: 048
     Dates: start: 20091211
  4. ACETAMINOPHEN [Concomitant]
     Route: 065
     Dates: start: 20090812
  5. AMLODIPINE [Concomitant]
     Route: 065
     Dates: start: 20090812
  6. ALLOPURINOL [Concomitant]
     Route: 065
     Dates: start: 20090812
  7. FUROSEMIDE [Concomitant]
     Route: 065
     Dates: start: 20090812
  8. TRAMADOL HYDROCHLORIDE [Concomitant]
     Route: 065
     Dates: start: 20090812
  9. OMEGA-3-ACID ETHYL ESTERS [Suspect]
     Route: 065
     Dates: start: 20090101
  10. POTASSIUM CHLORIDE [Concomitant]
     Route: 065
     Dates: start: 20090801
  11. ASPIRIN [Concomitant]
     Route: 065
     Dates: start: 19990101

REACTIONS (1)
  - RADIUS FRACTURE [None]
